FAERS Safety Report 8405748-X (Version None)
Quarter: 2012Q2

REPORT INFORMATION
  Report Type: 
  Country: None (occurrence: None)
  Receive Date: 20120530
  Receipt Date: 20120530
  Transmission Date: 20120825
  Serious: No
  Sender: FDA-Public Use
  Company Number: None

PATIENT
  Sex: Male

DRUGS (1)
  1. LISINOPRIL [Suspect]
     Dosage: 10 DAILY

REACTIONS (5)
  - PAIN [None]
  - VISUAL FIELD DEFECT [None]
  - COUGH [None]
  - SKIN EXFOLIATION [None]
  - RASH PRURITIC [None]
